FAERS Safety Report 7487344-4 (Version None)
Quarter: 2011Q2

REPORT INFORMATION
  Report Type: 
  Country: None (occurrence: None)
  Receive Date: 20110518
  Receipt Date: 20110510
  Transmission Date: 20111010
  Serious: Yes (Hospitalization, Other)
  Sender: FDA-Public Use
  Company Number: JP-ASTELLAS-2011JP002938

PATIENT
  Sex: Female
  Weight: 35 kg

DRUGS (5)
  1. KIPRES [Concomitant]
     Dosage: UNK
     Route: 065
  2. ZYRETIC [Concomitant]
     Route: 065
  3. ROHYPNOL [Concomitant]
     Indication: INSOMNIA
     Dosage: 1 MG, UID/QD
     Route: 048
     Dates: start: 20110208
  4. HOCHUUEKKITOU [Concomitant]
     Dosage: 2.5 G, TID
     Route: 048
     Dates: start: 20100901
  5. VESICARE [Suspect]
     Indication: POLLAKIURIA
     Dosage: 5 MG, UID/QD
     Route: 048
     Dates: start: 20110407

REACTIONS (2)
  - GASTRIC DILATATION [None]
  - OESOPHAGEAL DILATATION [None]
